FAERS Safety Report 15971603 (Version 1)
Quarter: 2019Q1

REPORT INFORMATION
  Report Type: Spontaneous
  Country: US (occurrence: US)
  Receive Date: 20190215
  Receipt Date: 20190215
  Transmission Date: 20190418
  Serious: No
  Sender: FDA-Public Use
  Company Number: US-AMAG PHARMACEUTICALS, INC.-AMAG201804365

PATIENT
  Age: 28 Year
  Sex: Female
  Weight: 86.17 kg

DRUGS (3)
  1. PRENATAL IRON [Concomitant]
     Indication: MINERAL SUPPLEMENTATION
     Dosage: 800 ?G, ONCE EVERY 30 DAYS
     Route: 065
     Dates: start: 20180606
  2. MAKENA [Suspect]
     Active Substance: HYDROXYPROGESTERONE CAPROATE
     Indication: PREMATURE DELIVERY
     Dosage: 250 MG/ML, WEEKLY
     Route: 058
     Dates: start: 20180806
  3. MACROBID [Concomitant]
     Active Substance: NITROFURANTOIN\NITROFURANTOIN MONOHYDRATE
     Indication: URINARY TRACT INFECTION
     Dosage: 100 MG, BID (Q12H)
     Route: 065
     Dates: start: 20180804, end: 20180811

REACTIONS (2)
  - Product administered at inappropriate site [Recovered/Resolved]
  - Injection site pain [Recovered/Resolved]

NARRATIVE: CASE EVENT DATE: 20180806
